FAERS Safety Report 8133207-0 (Version None)
Quarter: 2012Q1

REPORT INFORMATION
  Report Type: 
  Country: None (occurrence: None)
  Receive Date: 20120213
  Receipt Date: 20120208
  Transmission Date: 20120608
  Serious: Yes (Other)
  Sender: FDA-Public Use
  Company Number: PHHY2011US03076

PATIENT
  Sex: Female

DRUGS (10)
  1. NEXIUM [Concomitant]
  2. DIOVAN [Suspect]
     Dosage: 80 MG, DAILY
  3. WATER PILLS [Concomitant]
  4. PLATELET AGGREGATION INHIBITORS [Concomitant]
  5. BYSTOLIC [Concomitant]
     Dosage: 5 MG, UNK
  6. CRESTOR [Concomitant]
     Dosage: 10 MG, UNK
  7. HYDROCHLOROTHIAZIDE [Concomitant]
  8. ZOLOFT [Concomitant]
     Dosage: 50 MG, UNK
  9. VERAPAMIL [Concomitant]
     Dosage: 240 MG, UNK
  10. ASPIRIN [Concomitant]

REACTIONS (4)
  - NASOPHARYNGITIS [None]
  - MALAISE [None]
  - BLOOD PRESSURE INCREASED [None]
  - BREAST CANCER [None]
